FAERS Safety Report 23922236 (Version 1)
Quarter: 2024Q2

REPORT INFORMATION
  Report Type: Spontaneous
  Country: CN (occurrence: CN)
  Receive Date: 20240531
  Receipt Date: 20240531
  Transmission Date: 20240716
  Serious: Yes (Hospitalization, Other)
  Sender: FDA-Public Use
  Company Number: CN-CHEPLA-2024006567

PATIENT
  Age: 55 Year
  Sex: Male
  Weight: 60 kg

DRUGS (3)
  1. CAPECITABINE [Suspect]
     Active Substance: CAPECITABINE
     Indication: Gastric cancer
     Dosage: APPROVAL NO. GYZZ H20073024 ; BID?DAILY DOSE: 6 DOSAGE FORM
     Route: 048
     Dates: start: 20240315, end: 20240329
  2. OXALIPLATIN [Suspect]
     Active Substance: OXALIPLATIN
     Indication: Gastric cancer
     Dosage: APPROVAL NO. GYZZ 200213060; IV DRIP
     Route: 042
     Dates: start: 20240315, end: 20240315
  3. SINTILIMAB [Suspect]
     Active Substance: SINTILIMAB
     Indication: Gastric cancer
     Dosage: APPROVAL NO. GYZZ S20180016; IV DRIP
     Route: 042
     Dates: start: 20240315, end: 20240315

REACTIONS (1)
  - Immune-mediated nephritis [Recovering/Resolving]

NARRATIVE: CASE EVENT DATE: 20240409
